FAERS Safety Report 4771012-3 (Version None)
Quarter: 2005Q3

REPORT INFORMATION
  Report Type: 
  Country: None (occurrence: None)
  Receive Date: 20050914
  Receipt Date: 20050825
  Transmission Date: 20060218
  Serious: Yes (Death)
  Sender: FDA-Public Use
  Company Number: 12267

PATIENT
  Age: 48 Year
  Sex: Female

DRUGS (1)
  1. MORPHINE [Suspect]

REACTIONS (9)
  - CONTUSION [None]
  - DRUG TOXICITY [None]
  - INTERSTITIAL LUNG DISEASE [None]
  - LARYNGEAL STENOSIS [None]
  - LARYNGITIS [None]
  - OBSTRUCTIVE AIRWAYS DISORDER [None]
  - PULMONARY GRANULOMA [None]
  - SQUAMOUS CELL CARCINOMA [None]
  - TRACHEOBRONCHITIS [None]
